FAERS Safety Report 12845166 (Version 1)
Quarter: 2016Q4

REPORT INFORMATION
  Report Type: Report from Study
  Country: None (occurrence: BR)
  Receive Date: 20161013
  Receipt Date: 20161013
  Transmission Date: 20170207
  Serious: Yes (Hospitalization, Other)
  Sender: FDA-Public Use
  Company Number: BR-ABBVIE-16K-020-1749468-00

PATIENT
  Age: 28 Year
  Sex: Male
  Weight: 79 kg

DRUGS (3)
  1. HUMIRA [Suspect]
     Active Substance: ADALIMUMAB
     Dosage: MAINTENANCE DOSE
     Route: 058
     Dates: start: 2016, end: 20160911
  2. HUMIRA [Suspect]
     Active Substance: ADALIMUMAB
     Dosage: LOADING DOSE
     Route: 058
     Dates: start: 2016, end: 2016
  3. HUMIRA [Suspect]
     Active Substance: ADALIMUMAB
     Indication: CROHN^S DISEASE
     Dosage: LOADING DOSE
     Route: 058
     Dates: start: 20160804, end: 20160804

REACTIONS (7)
  - Hypovitaminosis [Unknown]
  - Bacterial infection [Not Recovered/Not Resolved]
  - Vocal cord thickening [Recovering/Resolving]
  - Dysphagia [Not Recovered/Not Resolved]
  - Dysphonia [Recovering/Resolving]
  - Tuberculosis [Not Recovered/Not Resolved]
  - Intestinal tuberculosis [Unknown]

NARRATIVE: CASE EVENT DATE: 2016
